FAERS Safety Report 7627427-9 (Version None)
Quarter: 2011Q3

REPORT INFORMATION
  Report Type: 
  Country: None (occurrence: None)
  Receive Date: 20110721
  Receipt Date: 20110719
  Transmission Date: 20111222
  Serious: No
  Sender: FDA-Public Use
  Company Number: US-PFIZER INC-2011164244

PATIENT
  Sex: Male
  Weight: 66 kg

DRUGS (3)
  1. FLOMAX [Concomitant]
     Indication: PROSTATIC DISORDER
     Dosage: UNK
  2. PROSCAR [Concomitant]
     Indication: PROSTATIC DISORDER
     Dosage: UNK
  3. LIPITOR [Suspect]
     Indication: BLOOD CHOLESTEROL INCREASED
     Dosage: 40 MG, 1X/DAY
     Route: 048

REACTIONS (2)
  - ASPARTATE AMINOTRANSFERASE INCREASED [None]
  - ALANINE AMINOTRANSFERASE INCREASED [None]
